FAERS Safety Report 24616103 (Version 5)
Quarter: 2025Q1

REPORT INFORMATION
  Report Type: Report from Study
  Country: CO (occurrence: CO)
  Receive Date: 20241113
  Receipt Date: 20250314
  Transmission Date: 20250408
  Serious: Yes (Hospitalization)
  Sender: Unknown Manufacturer
  Company Number: CO-MIRUM PHARMACEUTICALS, INC.-CO-MIR-24-00113

PATIENT

DRUGS (9)
  1. LIVMARLI [Suspect]
     Active Substance: MARALIXIBAT CHLORIDE
     Indication: Alagille syndrome
     Dosage: 0.6 MILLILITER, QD
     Route: 048
     Dates: start: 20241002, end: 20250105
  2. LIVMARLI [Suspect]
     Active Substance: MARALIXIBAT CHLORIDE
     Dosage: 0.6 MILLILITER, QD
     Route: 048
     Dates: start: 20240805, end: 20240923
  3. LIVMARLI [Suspect]
     Active Substance: MARALIXIBAT CHLORIDE
     Dosage: 0.6 MILLILITER, QD
     Route: 048
     Dates: start: 20240217, end: 20240617
  4. LIVMARLI [Suspect]
     Active Substance: MARALIXIBAT CHLORIDE
     Dosage: 0.5 MILLILITER, QD
     Route: 048
  5. URSODIOL [Concomitant]
     Active Substance: URSODIOL
     Indication: Alagille syndrome
     Dosage: 300 MILLIGRAM, Q12H
     Route: 048
     Dates: start: 20230201
  6. CALCIUM [Concomitant]
     Active Substance: CALCIUM
     Indication: Alagille syndrome
     Route: 065
  7. ZINC [Concomitant]
     Active Substance: ZINC
     Indication: Alagille syndrome
     Route: 065
  8. .ALPHA.-TOCOPHEROL [Concomitant]
     Active Substance: .ALPHA.-TOCOPHEROL
     Indication: Alagille syndrome
     Route: 065
  9. VITAMINS [Concomitant]
     Active Substance: VITAMINS
     Indication: Vitamin supplementation
     Dosage: 5 MILLILITER, QD
     Route: 048
     Dates: start: 20240201

REACTIONS (13)
  - Transplant evaluation [Recovered/Resolved]
  - Pruritus [Not Recovered/Not Resolved]
  - Insomnia [Unknown]
  - Educational problem [Not Recovered/Not Resolved]
  - Blood alkaline phosphatase increased [Not Recovered/Not Resolved]
  - Gamma-glutamyltransferase increased [Not Recovered/Not Resolved]
  - Aspartate aminotransferase increased [Not Recovered/Not Resolved]
  - Blood bilirubin increased [Not Recovered/Not Resolved]
  - Alanine aminotransferase increased [Not Recovered/Not Resolved]
  - Insurance issue [Recovered/Resolved]
  - Product dispensing issue [Not Recovered/Not Resolved]
  - Therapy interrupted [Not Recovered/Not Resolved]
  - Drug ineffective [Unknown]

NARRATIVE: CASE EVENT DATE: 20240222
